FAERS Safety Report 5490691-9 (Version None)
Quarter: 2007Q4

REPORT INFORMATION
  Report Type: 
  Country: None (occurrence: None)
  Receive Date: 20071019
  Receipt Date: 20071017
  Transmission Date: 20080405
  Serious: Yes (Other)
  Sender: FDA-Public Use
  Company Number: A0687797A

PATIENT
  Age: 23 Year
  Sex: Male

DRUGS (2)
  1. ALLI [Suspect]
     Dates: start: 20070928, end: 20071002
  2. NONE [Concomitant]

REACTIONS (3)
  - FAECAL INCONTINENCE [None]
  - FLATULENCE [None]
  - RECTAL DISCHARGE [None]
